FAERS Safety Report 4607330-9 (Version None)
Quarter: 2005Q1

REPORT INFORMATION
  Report Type: 
  Country: None (occurrence: None)
  Receive Date: 20050310
  Receipt Date: 20050225
  Transmission Date: 20050727
  Serious: Yes (Hospitalization)
  Sender: FDA-Public Use
  Company Number: 2005-03-0006

PATIENT
  Age: 74 Year
  Sex: Male

DRUGS (12)
  1. CLARITIN [Suspect]
     Dosage: 10 MG; ORAL
     Route: 048
     Dates: start: 20050224, end: 20050225
  2. TAMIFLU (OSELTAMIVIR) CAPSULES [Suspect]
     Indication: INFLUENZA
     Dosage: 150 MG; ORAL
     Route: 048
     Dates: start: 20050224
  3. PRAVASTATIN SODIUM [Concomitant]
  4. ISOSORBIDE MONONITRATE [Concomitant]
  5. HARNAL (TAMSULOSIN HYDROCHLORIDE) [Concomitant]
  6. LENDORMIN TABLETS [Concomitant]
  7. MAGNESIUM OXIDE [Concomitant]
  8. BIOFERMIN R [Concomitant]
  9. MARZULENE S [Concomitant]
  10. GASTER ORAL POWDER [Concomitant]
  11. PURSENNID TABLETS ORAL [Concomitant]
  12. PANTETHINE [Concomitant]

REACTIONS (2)
  - DERMATITIS EXFOLIATIVE [None]
  - FACE OEDEMA [None]
